FAERS Safety Report 9026159 (Version 1)
Quarter: 2012Q4

REPORT INFORMATION
  Report Type: Spontaneous
  Country: US (occurrence: None)
  Receive Date: 20121217
  Receipt Date: 20121217
  Transmission Date: 20130627
  Serious: Yes (Other)
  Sender: FDA-Public Use
  Company Number: None

PATIENT
  Age: 60 Year
  Sex: Male

DRUGS (2)
  1. RIBAPAK [Suspect]
     Indication: HEPATITIS C
     Route: 048
     Dates: start: 20121102, end: 20121212
  2. PEGASYS [Suspect]
     Indication: HEPATITIS C
     Dosage: 180mcg  qweek  subq
     Route: 058
     Dates: start: 20121102, end: 20121212

REACTIONS (1)
  - Red blood cell count decreased [None]
